FAERS Safety Report 8617607-8 (Version None)
Quarter: 2012Q3

REPORT INFORMATION
  Report Type: 
  Country: None (occurrence: None)
  Receive Date: 20120824
  Receipt Date: 20120125
  Transmission Date: 20120928
  Serious: No
  Sender: FDA-Public Use
  Company Number: US-ASTRAZENECA-2011SE72834

PATIENT
  Sex: Female

DRUGS (1)
  1. SYMBICORT [Suspect]
     Dosage: 160 / 4.5 MCG, 2 INHALATIONS TWICE DAILY
     Route: 055

REACTIONS (3)
  - DYSPNOEA [None]
  - EMPHYSEMA [None]
  - DRUG DOSE OMISSION [None]
